FAERS Safety Report 25502469 (Version 1)
Quarter: 2025Q3

REPORT INFORMATION
  Report Type: Spontaneous
  Country: CN (occurrence: CN)
  Receive Date: 20250702
  Receipt Date: 20250702
  Transmission Date: 20251021
  Serious: Yes (Other)
  Sender: JOHNSON AND JOHNSON
  Company Number: CN-JNJFOC-20250632590

PATIENT

DRUGS (2)
  1. RISPERIDONE [Suspect]
     Active Substance: RISPERIDONE
     Indication: Schizophrenia
     Route: 048
  2. OLANZAPINE [Suspect]
     Active Substance: OLANZAPINE
     Indication: Schizophrenia
     Dosage: INCREASED APPROPRIATELY ACCORDING TO THE PATIENT^S CONDITION, ?WITH THE TOTAL DRUG DOSE CONTROLLED A
     Route: 048

REACTIONS (12)
  - Renal impairment [Unknown]
  - Product use issue [Unknown]
  - Drug ineffective [Unknown]
  - Therapeutic response unexpected [Unknown]
  - Dry mouth [Unknown]
  - Headache [Unknown]
  - Dizziness [Unknown]
  - Somnolence [Unknown]
  - Nausea [Unknown]
  - Vomiting [Unknown]
  - Hepatic function abnormal [Unknown]
  - Weight increased [Unknown]
